FAERS Safety Report 10946301 (Version 1)
Quarter: 2015Q1

REPORT INFORMATION
  Report Type: Spontaneous
  Country: GB (occurrence: GB)
  Receive Date: 20150323
  Receipt Date: 20150323
  Transmission Date: 20150721
  Serious: Yes (Other)
  Sender: FDA-Public Use
  Company Number: GB-WATSON-2015-05640

PATIENT
  Age: 24 Year
  Sex: Female
  Weight: 63 kg

DRUGS (5)
  1. ETONOGESTREL [Concomitant]
     Active Substance: ETONOGESTREL
     Indication: PRODUCT USED FOR UNKNOWN INDICATION
     Dosage: UNK. FOR SUBDERMAL IMPLANTATION
     Route: 059
     Dates: start: 20150116
  2. TRIMETHOPRIM (UNKNOWN) [Suspect]
     Active Substance: TRIMETHOPRIM
     Indication: PRODUCT USED FOR UNKNOWN INDICATION
     Dosage: UNK UNK, TOTAL
     Route: 065
     Dates: start: 20150227
  3. LIDOCAINE. [Concomitant]
     Active Substance: LIDOCAINE
     Indication: PRODUCT USED FOR UNKNOWN INDICATION
     Dosage: UNK. USE AS DIRECTED
     Route: 065
     Dates: start: 20150130, end: 20150131
  4. CLINDAMYCIN [Concomitant]
     Active Substance: CLINDAMYCIN\CLINDAMYCIN PHOSPHATE
     Indication: PRODUCT USED FOR UNKNOWN INDICATION
     Dosage: UNK UNK, BID. APPLY THINLY TO THE AFFECTED AREA(S)
     Route: 061
     Dates: start: 20141127
  5. AZELAIC ACID [Concomitant]
     Active Substance: AZELAIC ACID
     Indication: PRODUCT USED FOR UNKNOWN INDICATION
     Dosage: UNK UNK, BID (APPLY TWICE DAILY)
     Route: 065
     Dates: start: 20141127

REACTIONS (1)
  - Urticaria [Recovering/Resolving]

NARRATIVE: CASE EVENT DATE: 20150227
